FAERS Safety Report 16074016 (Version 1)
Quarter: 2019Q1

REPORT INFORMATION
  Report Type: Spontaneous
  Country: US (occurrence: US)
  Receive Date: 20190314
  Receipt Date: 20190314
  Transmission Date: 20190418
  Serious: No
  Sender: FDA-Public Use
  Company Number: US-TEVA-2019-US-1014579

PATIENT
  Sex: Female

DRUGS (2)
  1. PROGESTERONE. [Concomitant]
     Active Substance: PROGESTERONE
     Dosage: WHICH HAD TO BE INCREASED TO 200 MG
     Route: 065
  2. ESTRADIOL TABLET [Suspect]
     Active Substance: ESTRADIOL
     Route: 065

REACTIONS (2)
  - Vaginal haemorrhage [Unknown]
  - Product colour issue [Unknown]
